FAERS Safety Report 8831253 (Version 1)
Quarter: 2012Q4

REPORT INFORMATION
  Report Type: 
  Country: US (occurrence: US)
  Receive Date: 20121008
  Receipt Date: 20121008
  Transmission Date: 20130627
  Serious: No
  Sender: FDA-Public Use
  Company Number: US-VERTEX PHARMACEUTICAL INC.-2012-021463

PATIENT
  Sex: Male
  Weight: 76.7 kg

DRUGS (9)
  1. VX-950 [Suspect]
     Indication: HEPATITIS C
     Dosage: 750 mg, tid
     Route: 048
     Dates: start: 20120904
  2. RIBASPHERE [Suspect]
     Indication: HEPATITIS C
     Dosage: 600 mg, bid
     Dates: start: 20120904
  3. PEGASYS [Suspect]
     Indication: HEPATITIS C
     Dosage: 180 ?g, weekly
     Route: 058
     Dates: start: 20120904
  4. FISH OIL [Concomitant]
  5. VITAMIN D3 [Concomitant]
  6. BABY ASPIRIN [Concomitant]
  7. CENTRUM COMPLETE [Concomitant]
     Dosage: UNK, qd
  8. PRINIVIL [Concomitant]
     Dosage: 20 mg, qd
  9. NORVASC [Concomitant]
     Dosage: 5 mg, qd

REACTIONS (2)
  - Injection site rash [Unknown]
  - Haemorrhoids [Unknown]
